FAERS Safety Report 6715273-X (Version None)
Quarter: 2010Q2

REPORT INFORMATION
  Report Type: 
  Country: None (occurrence: None)
  Receive Date: 20100507
  Receipt Date: 20100429
  Transmission Date: 20101027
  Serious: Yes (Hospitalization, Other)
  Sender: FDA-Public Use
  Company Number: BR-ABBOTT-09P-020-0603918-00

PATIENT
  Sex: Female
  Weight: 62 kg

DRUGS (16)
  1. HUMIRA [Suspect]
     Indication: RHEUMATOID ARTHRITIS
     Route: 058
  2. HUMIRA [Suspect]
     Dates: end: 20090930
  3. NATRILIX [Concomitant]
     Indication: DRUG USE FOR UNKNOWN INDICATION
     Route: 048
     Dates: start: 20090101
  4. PREDNISONE [Concomitant]
     Indication: RHEUMATOID ARTHRITIS
     Route: 048
  5. SCAFLAM [Concomitant]
     Indication: PAIN
     Route: 048
  6. SCAFLAM [Concomitant]
     Indication: ANTIINFLAMMATORY THERAPY
  7. SUSTRATE [Concomitant]
     Indication: HYPERTENSION
     Route: 048
  8. TORLOS [Concomitant]
     Indication: HYPERTENSION
     Route: 048
     Dates: end: 20091001
  9. AMLODIPINE BESYLATE [Concomitant]
     Indication: HYPERTENSION
     Route: 048
     Dates: start: 20091001
  10. SETERIDE 250 [Concomitant]
     Indication: LUNG DISORDER
  11. METHOTREXATE [Concomitant]
     Indication: RHEUMATOID ARTHRITIS
     Route: 048
  12. DIAZEPAM [Concomitant]
     Indication: INSOMNIA
  13. OMEPRAZOLE [Concomitant]
     Indication: GASTRITIS
     Route: 048
  14. BANIF [Concomitant]
     Indication: BRONCHIAL IRRITATION
     Route: 048
  15. ATROVENT [Concomitant]
     Indication: PNEUMONIA
     Dosage: 60 DROPS IN 45ML OF SALINE SOLUTUION
     Route: 055
  16. ATROVENT [Concomitant]
     Indication: DYSPNOEA

REACTIONS (15)
  - CARDIAC ARREST [None]
  - COUGH [None]
  - DYSPNOEA [None]
  - HYPERTENSION [None]
  - INJECTION SITE PAIN [None]
  - LUNG DISORDER [None]
  - MEMORY IMPAIRMENT [None]
  - MYOCARDIAL INFARCTION [None]
  - NASOPHARYNGITIS [None]
  - OEDEMA PERIPHERAL [None]
  - PNEUMONIA [None]
  - PRURITUS [None]
  - RASH MACULAR [None]
  - SPUTUM DISCOLOURED [None]
  - TRAUMATIC LUNG INJURY [None]
